FAERS Safety Report 9977673 (Version 2)
Quarter: 2014Q1

REPORT INFORMATION
  Report Type: Report from Study
  Country: US (occurrence: US)
  Receive Date: 20140306
  Receipt Date: 20140306
  Transmission Date: 20141002
  Serious: No
  Sender: FDA-Public Use
  Company Number: US-ABBVIE-13P-163-1151800-00

PATIENT
  Age: 52 Year
  Sex: Female

DRUGS (4)
  1. HUMIRA [Suspect]
     Indication: PSORIATIC ARTHROPATHY
     Dates: start: 20130831, end: 20130914
  2. HUMIRA [Suspect]
     Route: 058
     Dates: start: 20131021
  3. ZOLOFT [Concomitant]
     Indication: DEPRESSION
  4. TRAZODONE [Concomitant]
     Indication: INSOMNIA

REACTIONS (7)
  - Road traffic accident [Unknown]
  - Pulmonary mass [Not Recovered/Not Resolved]
  - Musculoskeletal stiffness [Recovering/Resolving]
  - Infection [Not Recovered/Not Resolved]
  - Psoriasis [Unknown]
  - Erythema [Unknown]
  - Pruritus [Unknown]
